FAERS Safety Report 17872325 (Version 1)
Quarter: 2020Q2

REPORT INFORMATION
  Report Type: Spontaneous
  Country: PK (occurrence: PK)
  Receive Date: 20200608
  Receipt Date: 20200608
  Transmission Date: 20200714
  Serious: Yes (Death)
  Sender: FDA-Public Use
  Company Number: PK-ROCHE-2616597

PATIENT
  Age: 47 Year
  Sex: Male

DRUGS (5)
  1. ACTEMRA [Suspect]
     Active Substance: TOCILIZUMAB
     Indication: PYREXIA
  2. ACTEMRA [Suspect]
     Active Substance: TOCILIZUMAB
     Indication: COVID-19
     Dosage: 8 INJECTIONS OF 80 MG
     Route: 042
     Dates: start: 20200524, end: 20200524
  3. ACTEMRA [Suspect]
     Active Substance: TOCILIZUMAB
     Indication: INFLUENZA
  4. ACTEMRA [Suspect]
     Active Substance: TOCILIZUMAB
     Indication: TYPHOID FEVER
  5. ACTEMRA [Suspect]
     Active Substance: TOCILIZUMAB
     Indication: HAEMOPTYSIS

REACTIONS (3)
  - Intentional product use issue [Fatal]
  - Death [Fatal]
  - Off label use [Fatal]

NARRATIVE: CASE EVENT DATE: 20200524
